FAERS Safety Report 18007059 (Version 1)
Quarter: 2020Q3

REPORT INFORMATION
  Report Type: Report from Study
  Country: BE (occurrence: BE)
  Receive Date: 20200710
  Receipt Date: 20200710
  Transmission Date: 20201103
  Serious: Yes (Other)
  Sender: FDA-Public Use
  Company Number: BE-PFIZER INC-2020260496

PATIENT
  Age: 51 Year
  Sex: Female

DRUGS (6)
  1. EPIRUBICIN HCL [Suspect]
     Active Substance: EPIRUBICIN HYDROCHLORIDE
     Indication: CHEMOTHERAPY
     Dosage: 170 MG, EVERY 2 WEEKS
     Route: 042
     Dates: start: 20160818
  2. ALPRAZOLAM. [Concomitant]
     Active Substance: ALPRAZOLAM
     Indication: ANXIETY
     Route: 048
  3. LONQUEX [Suspect]
     Active Substance: LIPEGFILGRASTIM
     Indication: PROPHYLAXIS
     Dosage: 6 MG, EVERY 2 WEEKS (LAST ADMIN DATE BEFORE AE:19AUG2016)
     Route: 058
     Dates: start: 20160819
  4. CYCLOPHOSPHAMID [Suspect]
     Active Substance: CYCLOPHOSPHAMIDE
     Indication: CHEMOTHERAPY
     Dosage: 1020 MG, EVERY 2 WEEKS
     Route: 042
     Dates: start: 20160818
  5. FLUOROURACIL. [Suspect]
     Active Substance: FLUOROURACIL
     Indication: BREAST CANCER
     Dosage: 850 MG, EVERY 2 WEEKS
     Route: 042
     Dates: start: 20160818
  6. CARDIOASPIRINE [Concomitant]
     Active Substance: ASPIRIN
     Indication: CARDIAC DISORDER
     Dosage: 100 MG
     Route: 048

REACTIONS (3)
  - Leukopenia [Recovering/Resolving]
  - Dry skin [Recovering/Resolving]
  - Mucosal dryness [Recovering/Resolving]

NARRATIVE: CASE EVENT DATE: 20160826
